FAERS Safety Report 6987799-5 (Version None)
Quarter: 2010Q3

REPORT INFORMATION
  Report Type: 
  Country: None (occurrence: None)
  Receive Date: 20100914
  Receipt Date: 20100901
  Transmission Date: 20110219
  Serious: Yes (Other)
  Sender: FDA-Public Use
  Company Number: 2010AP001881

PATIENT
  Age: 66 Year
  Sex: Male

DRUGS (9)
  1. AMLODIPINE BESYLATE [Suspect]
     Indication: BLOOD PRESSURE INCREASED
     Dosage: 10 MG;QD
     Dates: end: 20100610
  2. PREZISTA [Suspect]
     Indication: HIV INFECTION
     Dosage: 800 MG;QD; PO
     Route: 048
     Dates: start: 20100412
  3. RITONAVIR [Suspect]
     Indication: HIV INFECTION
     Dosage: 100 MG;QD; PO
     Route: 048
     Dates: start: 20100412
  4. AMLODIPINE [Concomitant]
  5. RITONAVIR [Concomitant]
  6. TENOFOVIR DISOPROXIL FUMARATE [Concomitant]
  7. EMTRICITASINE (EMTRICITASINE) [Concomitant]
  8. FAMCICLOVIR [Concomitant]
  9. PENICILLIN NOS (PENICILLIN NOS) [Concomitant]

REACTIONS (3)
  - DRUG INTERACTION [None]
  - MERALGIA PARAESTHETICA [None]
  - OEDEMA PERIPHERAL [None]
